FAERS Safety Report 4297166-3 (Version None)
Quarter: 2004Q1

REPORT INFORMATION
  Report Type: 
  Country: None (occurrence: None)
  Receive Date: 20040217
  Receipt Date: 20040217
  Transmission Date: 20041129
  Serious: No
  Sender: FDA-Public Use
  Company Number: None

PATIENT

DRUGS (2)
  1. PREDNISONE [Suspect]
     Dosage: TABS 1 TID PO
     Route: 048
  2. PRANDIN [Suspect]
     Dosage: 1 TID PO PC TABS
     Route: 048

REACTIONS (1)
  - MEDICATION ERROR [None]
